FAERS Safety Report 19679128 (Version 3)
Quarter: 2022Q3

REPORT INFORMATION
  Report Type: Spontaneous
  Country: JP (occurrence: JP)
  Receive Date: 20210810
  Receipt Date: 20220714
  Transmission Date: 20221027
  Serious: Yes (Hospitalization, Other)
  Sender: FDA-Public Use
  Company Number: JP-GSKNCCC-CASE-01275547_AE-47967

PATIENT

DRUGS (12)
  1. FLUTICASONE FUROATE\VILANTEROL TRIFENATATE [Suspect]
     Active Substance: FLUTICASONE FUROATE\VILANTEROL TRIFENATATE
     Dosage: 100 ?G, QD
  2. VALSARTAN [Concomitant]
     Active Substance: VALSARTAN
     Dosage: 80 MG, QD, AFTER BREAKFAST
  3. FUROSEMIDE [Concomitant]
     Active Substance: FUROSEMIDE
     Dosage: 20 MG, QD, AFTER BREAKFAST
  4. ALDACTONE-A TABLETS [Concomitant]
     Dosage: 25 MG, QD, AFTER BREAKFAST
  5. BENAZEPRIL HYDROCHLORIDE [Concomitant]
     Active Substance: BENAZEPRIL HYDROCHLORIDE
     Dosage: 5 MG, BID, AFTER BREAKFAST AND DINNER
  6. ATENOLOL [Concomitant]
     Active Substance: ATENOLOL
     Dosage: 25 MG, BID, AFTER BREAKFAST AND DINNER
  7. TEPRENONE CAPSULES [Concomitant]
     Dosage: 50 MG, BID, AFTER BREAKFAST AND DINNER
  8. CYMBALTA [Concomitant]
     Active Substance: DULOXETINE HYDROCHLORIDE
     Dosage: 30 MG, QD, AFTER DINNER
  9. LOXOPROFEN SODIUM [Concomitant]
     Active Substance: LOXOPROFEN SODIUM
     Dosage: UNK
  10. NESINA TABLETS [Concomitant]
     Dosage: 6.25 MG, QD, AFTER BREAKFAST
     Dates: end: 20210801
  11. EDOXABAN TOSYLATE [Concomitant]
     Active Substance: EDOXABAN TOSYLATE
     Dosage: 30 MG, QD, AFTER BREAKFAST
     Dates: end: 20210801
  12. CILNIDIPINE TABLETS [Concomitant]
     Dosage: 10 MG, BID, AFTER BREAKFAST AND DINNER
     Dates: end: 20210801

REACTIONS (3)
  - Cardiac failure chronic [Unknown]
  - Hyperhidrosis [Unknown]
  - Refusal of treatment by patient [Unknown]

NARRATIVE: CASE EVENT DATE: 20210801
